FAERS Safety Report 5498811-7 (Version None)
Quarter: 2007Q4

REPORT INFORMATION
  Report Type: 
  Country: None (occurrence: None)
  Receive Date: 20071026
  Receipt Date: 20070720
  Transmission Date: 20080405
  Serious: No
  Sender: FDA-Public Use
  Company Number: A0665401A

PATIENT
  Age: 40 Year
  Sex: Male

DRUGS (5)
  1. ADVAIR DISKUS 100/50 [Suspect]
     Dosage: 1PUFF TWICE PER DAY
     Route: 055
     Dates: start: 20070718, end: 20070719
  2. BENICAR [Concomitant]
  3. HYDROCHLOROTHIAZIDE [Concomitant]
  4. LEVAQUIN [Concomitant]
  5. ALBUTEROL [Concomitant]

REACTIONS (1)
  - ABDOMINAL PAIN UPPER [None]
